FAERS Safety Report 10360464 (Version 2)
Quarter: 2014Q3

REPORT INFORMATION
  Report Type: Spontaneous
  Country: US (occurrence: US)
  Receive Date: 20140804
  Receipt Date: 20140804
  Transmission Date: 20150326
  Serious: Yes (Other)
  Sender: FDA-Public Use
  Company Number: PHHY2014US018550

PATIENT
  Sex: Female

DRUGS (10)
  1. LIORESAL [Suspect]
     Active Substance: BACLOFEN
     Dosage: 600 UG, DAILY
     Route: 037
  2. ACETYLSALICYLIC ACID [Suspect]
     Active Substance: ASPIRIN
     Dosage: UNK UKN, UNK
     Route: 048
  3. EFFEXOR [Suspect]
     Active Substance: VENLAFAXINE HYDROCHLORIDE
     Dosage: UNK UKN, UNK
     Route: 048
  4. LIORESAL [Suspect]
     Active Substance: BACLOFEN
     Dosage: 499.9 UKN, DAILY
     Route: 037
  5. LABETALOL [Suspect]
     Active Substance: LABETALOL\LABETALOL HYDROCHLORIDE
     Dosage: UNK UKN, UNK
     Route: 048
  6. LIORESAL [Suspect]
     Active Substance: BACLOFEN
     Indication: MUSCLE SPASTICITY
     Dosage: 625 UG, DAY
     Route: 037
     Dates: start: 20140225
  7. LIORESAL [Suspect]
     Active Substance: BACLOFEN
     Dosage: INCREASED TO 500MCG/DAY
     Route: 037
  8. LIORESAL [Suspect]
     Active Substance: BACLOFEN
     Dosage: UNK, INCREASED
     Route: 037
     Dates: start: 20140725
  9. KEPPRA [Suspect]
     Active Substance: LEVETIRACETAM
     Dosage: UNK UKN, UNK
     Route: 048
  10. SENNA [Suspect]
     Active Substance: SENNA LEAF\SENNOSIDES\SENNOSIDES A AND B
     Dosage: UNK UKN, UNK
     Route: 048

REACTIONS (4)
  - Therapeutic response decreased [Not Recovered/Not Resolved]
  - Drug resistance [Not Recovered/Not Resolved]
  - Muscle spasticity [Not Recovered/Not Resolved]
  - No therapeutic response [Not Recovered/Not Resolved]
